FAERS Safety Report 23219746 (Version 1)
Quarter: 2023Q4

REPORT INFORMATION
  Report Type: Spontaneous
  Country: US (occurrence: US)
  Receive Date: 20231122
  Receipt Date: 20231122
  Transmission Date: 20240110
  Serious: No
  Sender: FDA-Public Use
  Company Number: US-AVADEL CNS PHARMACEUTICALS, LLC-2023AVA00105

PATIENT
  Age: 44 Year
  Sex: Male

DRUGS (5)
  1. LUMRYZ [Suspect]
     Active Substance: SODIUM OXYBATE
     Indication: Narcolepsy
     Dosage: 7.5 G
     Dates: start: 202308, end: 202308
  2. LUMRYZ [Suspect]
     Active Substance: SODIUM OXYBATE
     Indication: Cataplexy
  3. KLONOPIN [Suspect]
     Active Substance: CLONAZEPAM
     Dosage: UNK
  4. KLONOPIN [Suspect]
     Active Substance: CLONAZEPAM
     Dosage: TAPER
  5. UNSPECIFIED INGREDIENT [Suspect]
     Active Substance: UNSPECIFIED INGREDIENT
     Dosage: UNK

REACTIONS (6)
  - Dyspnoea [Unknown]
  - Chest discomfort [Unknown]
  - Middle insomnia [Unknown]
  - Initial insomnia [Unknown]
  - Therapeutic response shortened [Recovered/Resolved]
  - Drug interaction [Unknown]

NARRATIVE: CASE EVENT DATE: 20230801
